FAERS Safety Report 18467082 (Version 1)
Quarter: 2020Q4

REPORT INFORMATION
  Report Type: Other
  Country: UA (occurrence: UA)
  Receive Date: 20201105
  Receipt Date: 20201105
  Transmission Date: 20210114
  Serious: Yes (Other)
  Sender: FDA-Public Use
  Company Number: UA-ROCHE-2708048

PATIENT
  Sex: Female

DRUGS (1)
  1. RITUXIMAB. [Suspect]
     Active Substance: RITUXIMAB
     Indication: NEUROMYELITIS OPTICA SPECTRUM DISORDER
     Route: 065
     Dates: start: 2018

REACTIONS (3)
  - Off label use [Unknown]
  - Hepatitis B [Unknown]
  - Intentional product use issue [Unknown]
